FAERS Safety Report 13027046 (Version 3)
Quarter: 2017Q1

REPORT INFORMATION
  Report Type: Report from Study
  Country: GB (occurrence: GB)
  Receive Date: 20161214
  Receipt Date: 20170202
  Transmission Date: 20170428
  Serious: Yes (Hospitalization)
  Sender: FDA-Public Use
  Company Number: GB-JNJFOC-20161210192

PATIENT
  Age: 52 Year
  Sex: Female
  Weight: 101.9 kg

DRUGS (31)
  1. FELODIPINE. [Concomitant]
     Active Substance: FELODIPINE
     Route: 065
     Dates: start: 20061201
  2. LOSARTAN. [Concomitant]
     Active Substance: LOSARTAN
     Route: 065
     Dates: start: 20061201
  3. METFORMIN [Concomitant]
     Active Substance: METFORMIN HYDROCHLORIDE
     Route: 065
     Dates: start: 20120110
  4. LANSOPRAZOLE. [Concomitant]
     Active Substance: LANSOPRAZOLE
     Route: 065
  5. LANSOPRAZOLE. [Concomitant]
     Active Substance: LANSOPRAZOLE
     Route: 065
     Dates: start: 20061201
  6. HYDROCORTISONE. [Concomitant]
     Active Substance: HYDROCORTISONE
     Route: 065
     Dates: start: 20160509
  7. HYDROMOL [Concomitant]
     Route: 065
     Dates: start: 20160509
  8. AMITRIPTYLINE [Concomitant]
     Active Substance: AMITRIPTYLINE
     Route: 065
  9. FOLIC ACID. [Concomitant]
     Active Substance: FOLIC ACID
     Route: 065
     Dates: start: 20080910
  10. FOLIC ACID. [Concomitant]
     Active Substance: FOLIC ACID
     Route: 065
  11. STELARA [Suspect]
     Active Substance: USTEKINUMAB
     Indication: PSORIASIS
     Route: 058
     Dates: start: 20100817
  12. AMITRIPTYLINE [Concomitant]
     Active Substance: AMITRIPTYLINE
     Route: 065
     Dates: start: 20061201
  13. FELODIPINE. [Concomitant]
     Active Substance: FELODIPINE
     Route: 065
  14. NEFOPAM [Concomitant]
     Active Substance: NEFOPAM
     Route: 065
     Dates: start: 20150208
  15. FUROSEMIDE. [Concomitant]
     Active Substance: FUROSEMIDE
     Route: 065
     Dates: start: 20091030
  16. FELODIPINE. [Concomitant]
     Active Substance: FELODIPINE
     Route: 065
     Dates: start: 20061201
  17. MORPHINE SULPHATE [Concomitant]
     Active Substance: MORPHINE SULFATE
     Route: 065
     Dates: start: 20061201
  18. METHOTREXATE. [Concomitant]
     Active Substance: METHOTREXATE
     Route: 065
     Dates: start: 20070704, end: 20160326
  19. MORPHINE [Concomitant]
     Active Substance: MORPHINE
     Route: 065
  20. GLICLAZIDE [Concomitant]
     Active Substance: GLICLAZIDE
     Route: 065
     Dates: start: 20120110
  21. MORPHINE [Concomitant]
     Active Substance: MORPHINE
     Route: 065
     Dates: start: 20070717
  22. PREDNISOLONE. [Concomitant]
     Active Substance: PREDNISOLONE
     Route: 065
     Dates: start: 20100218
  23. HUMULIN NOS [Concomitant]
     Active Substance: INSULIN HUMAN
     Route: 065
     Dates: start: 20140115
  24. FUROSEMIDE. [Concomitant]
     Active Substance: FUROSEMIDE
     Route: 065
  25. METFORMIN [Concomitant]
     Active Substance: METFORMIN HYDROCHLORIDE
     Route: 065
  26. GABAPENTIN. [Concomitant]
     Active Substance: GABAPENTIN
     Route: 065
     Dates: start: 20100312
  27. DOMPERIDONE [Concomitant]
     Active Substance: DOMPERIDONE
     Route: 065
     Dates: start: 20110830
  28. CALCIPOTRIOL [Concomitant]
     Active Substance: CALCIPOTRIENE
     Route: 065
     Dates: start: 20160930
  29. GLICLAZIDE [Concomitant]
     Active Substance: GLICLAZIDE
     Route: 065
  30. BETNOVATE [Concomitant]
     Active Substance: BETAMETHASONE
     Route: 065
     Dates: start: 20160509
  31. BECLOMETHASONE [Concomitant]
     Active Substance: BECLOMETHASONE
     Route: 065
     Dates: start: 20160930

REACTIONS (3)
  - Psoriasis [Recovered/Resolved]
  - Psoriatic arthropathy [Recovered/Resolved]
  - Anal abscess [Recovered/Resolved]

NARRATIVE: CASE EVENT DATE: 20160509
